FAERS Safety Report 17000541 (Version 1)
Quarter: 2019Q4

REPORT INFORMATION
  Report Type: Spontaneous
  Country: NL (occurrence: NL)
  Receive Date: 20191106
  Receipt Date: 20191106
  Transmission Date: 20200122
  Serious: Yes (Other)
  Sender: FDA-Public Use
  Company Number: NL-MYLANLABS-2019M1104564

PATIENT
  Sex: Female
  Weight: 65 kg

DRUGS (3)
  1. TAMOXIFEN [Suspect]
     Active Substance: TAMOXIFEN
     Indication: BREAST CANCER
     Dosage: 1 X PER DAG 1 TABLET
     Route: 048
     Dates: start: 20180821, end: 20190114
  2. TACAL D3 [Concomitant]
     Dosage: 1 X PER DAG 1 TABLET, START 22-11-2018
     Dates: start: 20181122
  3. OMEPRAZOL                          /00661201/ [Concomitant]
     Active Substance: OMEPRAZOLE
     Dosage: 1 X PER DAG 1 CAPSULE, START 2010
     Dates: start: 2010

REACTIONS (3)
  - Dyspnoea [Not Recovered/Not Resolved]
  - Hot flush [Recovered/Resolved]
  - Muscle spasms [Recovered/Resolved]
